FAERS Safety Report 4492203-5 (Version None)
Quarter: 2004Q4

REPORT INFORMATION
  Report Type: 
  Country: None (occurrence: None)
  Receive Date: 20041101
  Receipt Date: 20041012
  Transmission Date: 20050328
  Serious: Yes (Other)
  Sender: FDA-Public Use
  Company Number: EM2004-0523

PATIENT
  Sex: 0

DRUGS (2)
  1. PROLEUKIN [Suspect]
     Indication: MALIGNANT MELANOMA
     Dosage: 3 MIU/M2, QD X 6 WEEKS, SUBCUTAN.
     Route: 058
  2. MELANOMA PEPTIDE VACCINE [Concomitant]

REACTIONS (1)
  - NERVOUS SYSTEM DISORDER [None]
